FAERS Safety Report 9880697 (Version 1)
Quarter: 2014Q1

REPORT INFORMATION
  Report Type: Spontaneous
  Country: US (occurrence: None)
  Receive Date: 20140206
  Receipt Date: 20140206
  Transmission Date: 20141002
  Serious: Yes (Other)
  Sender: FDA-Public Use
  Company Number: None

PATIENT
  Age: 60 Year
  Sex: Male

DRUGS (1)
  1. HUMIRA [Suspect]
     Dosage: 80MG  DAY 1  SQ?40MG  EVERY OTHER WEEK  SQ
     Route: 058
     Dates: start: 20131218, end: 20140124

REACTIONS (2)
  - Arthralgia [None]
  - Joint range of motion decreased [None]
